FAERS Safety Report 18048492 (Version 2)
Quarter: 2022Q4

REPORT INFORMATION
  Report Type: Spontaneous
  Country: FR (occurrence: FR)
  Receive Date: 20200721
  Receipt Date: 20221218
  Transmission Date: 20230113
  Serious: Yes (Other)
  Sender: FDA-Public Use
  Company Number: FR-JNJFOC-20200713139

PATIENT
  Age: 80 Year
  Sex: Female

DRUGS (5)
  1. MELPHALAN [Suspect]
     Active Substance: MELPHALAN
     Indication: Plasma cell myeloma
     Dosage: 4 DOSAGE FORM, EVERY WEEK
     Route: 065
  2. PREDNISONE [Suspect]
     Active Substance: PREDNISONE
     Indication: Plasma cell myeloma
     Dosage: 4 DOSAGE FORM, EVERY WEEK
     Route: 065
  3. CYCLOPHOSPHAMIDE [Suspect]
     Active Substance: CYCLOPHOSPHAMIDE
     Indication: Plasma cell myeloma
     Dosage: 1 DOSAGE FORM, EVERY WEEK
     Route: 065
  4. DEXAMETHASONE [Suspect]
     Active Substance: DEXAMETHASONE
     Indication: Plasma cell myeloma
     Dosage: 1 DOSAGE FORM, EVERY WEEK
     Route: 065
  5. VELCADE [Suspect]
     Active Substance: BORTEZOMIB
     Indication: Plasma cell myeloma
     Dosage: 1 DOSAGE FORM, EVERY WEEK (3 WEEKS PER CYCLE)
     Route: 065

REACTIONS (4)
  - Pancytopenia [Recovered/Resolved]
  - Drug intolerance [Recovered/Resolved]
  - Off label use [Unknown]
  - Product use issue [Unknown]
